FAERS Safety Report 7796662-1 (Version None)
Quarter: 2011Q3

REPORT INFORMATION
  Report Type: 
  Country: None (occurrence: None)
  Receive Date: 20110930
  Receipt Date: 20110912
  Transmission Date: 20111222
  Serious: Yes (Death)
  Sender: FDA-Public Use
  Company Number: M1104023

PATIENT
  Age: 74 Year
  Sex: Male

DRUGS (5)
  1. POTASSIUM CHLORIDE [Suspect]
     Indication: PRODUCT USED FOR UNKNOWN INDICATION
     Dosage: ORAL
     Route: 048
  2. MORPHINE [Suspect]
     Indication: PAIN
     Dosage: INTRAVENOUS
     Route: 042
  3. FENTANYL CITRATE [Suspect]
     Indication: PAIN
     Dosage: TOPICAL
     Route: 061
  4. OXYCODONE HCL [Suspect]
     Indication: PAIN
     Dosage: ORAL
     Route: 048
  5. MORPHINE SULFATE [Suspect]
     Indication: PAIN
     Dosage: SUBLINGUAL
     Route: 060

REACTIONS (2)
  - MULTIPLE DRUG OVERDOSE [None]
  - COMA [None]
